FAERS Safety Report 11108734 (Version 1)
Quarter: 2015Q2

REPORT INFORMATION
  Report Type: Spontaneous
  Country: US (occurrence: US)
  Receive Date: 20150513
  Receipt Date: 20150513
  Transmission Date: 20150821
  Serious: Yes (Hospitalization)
  Sender: FDA-Public Use
  Company Number: US-AUROBINDO-AUR-APL-2015-04057

PATIENT
  Age: 17 Year
  Sex: Male

DRUGS (1)
  1. AMLODIPINE BESYLATE TABLETS 5 MG [Suspect]
     Active Substance: AMLODIPINE BESYLATE
     Indication: PRODUCT USED FOR UNKNOWN INDICATION
     Dosage: 5 MG, UNK
     Route: 065

REACTIONS (6)
  - Shock [Unknown]
  - Heart rate decreased [Recovered/Resolved]
  - Hypotension [Recovered/Resolved]
  - Atrioventricular block complete [Unknown]
  - Lethargy [Unknown]
  - Overdose [Unknown]
